FAERS Safety Report 18464754 (Version 1)
Quarter: 2020Q4

REPORT INFORMATION
  Report Type: Spontaneous
  Country: ES (occurrence: ES)
  Receive Date: 20201104
  Receipt Date: 20201104
  Transmission Date: 20210114
  Serious: Yes (Other)
  Sender: FDA-Public Use
  Company Number: ES-ELI_LILLY_AND_COMPANY-ES202010012964

PATIENT
  Age: 78 Year
  Sex: Male

DRUGS (10)
  1. DEXAMETHASONE. [Suspect]
     Active Substance: DEXAMETHASONE
     Indication: PAIN
     Dosage: 4 UG, EVERY 12 HOURS
     Route: 065
     Dates: start: 201804
  2. GEMCITABINE HYDROCHLORIDE. [Suspect]
     Active Substance: GEMCITABINE HYDROCHLORIDE
     Indication: LUNG NEOPLASM MALIGNANT
     Dosage: UNK UNK, EVERY 21 DAYS
     Route: 065
     Dates: start: 201801
  3. FENTANYL. [Suspect]
     Active Substance: FENTANYL
     Dosage: 75 UG, EVERY 72 HOURS
     Route: 065
  4. FENTANYL. [Suspect]
     Active Substance: FENTANYL
     Dosage: 200 UG, UNKNOWN
     Route: 060
     Dates: start: 201804
  5. DENOSUMAB [Suspect]
     Active Substance: DENOSUMAB
     Indication: LUNG NEOPLASM MALIGNANT
     Dosage: UNK, EVERY 28 DAYS
     Route: 065
     Dates: start: 201801
  6. CARBOPLATIN. [Suspect]
     Active Substance: CARBOPLATIN
     Indication: LUNG NEOPLASM MALIGNANT
     Dosage: UNK, EVERY 21 DAYS
     Route: 065
     Dates: start: 201801
  7. FENTANYL. [Suspect]
     Active Substance: FENTANYL
     Indication: PAIN
     Dosage: 150 UG, EVERY 72 HOURS
     Route: 065
     Dates: start: 201804
  8. FENTANYL. [Suspect]
     Active Substance: FENTANYL
     Indication: BREAKTHROUGH PAIN
     Dosage: 100 UG, UNKNOWN
     Route: 060
     Dates: start: 2018
  9. FENTANYL. [Suspect]
     Active Substance: FENTANYL
     Dosage: 100 UG, EVERY 72 HOURS
     Route: 065
     Dates: start: 2018
  10. DEXAMETHASONE. [Suspect]
     Active Substance: DEXAMETHASONE
     Dosage: 4 MG, EVERY 12 HOURS
     Route: 065
     Dates: start: 2018

REACTIONS (7)
  - Neutropenia [Unknown]
  - Renal impairment [Unknown]
  - Depressed level of consciousness [Unknown]
  - Somnolence [Unknown]
  - Vomiting [Unknown]
  - Nausea [Unknown]
  - Anaemia [Unknown]

NARRATIVE: CASE EVENT DATE: 201804
